FAERS Safety Report 7072901-X (Version None)
Quarter: 2010Q4

REPORT INFORMATION
  Report Type: 
  Country: None (occurrence: None)
  Receive Date: 20101029
  Receipt Date: 20100729
  Transmission Date: 20110411
  Serious: No
  Sender: FDA-Public Use
  Company Number: A0852385A

PATIENT
  Age: 47 Year
  Sex: Female

DRUGS (7)
  1. ADVAIR DISKUS 100/50 [Suspect]
     Indication: CHRONIC OBSTRUCTIVE PULMONARY DISEASE
     Dosage: 1PUFF TWICE PER DAY
     Route: 055
     Dates: start: 20050101
  2. FLEXERIL [Concomitant]
  3. PROVENTIL [Concomitant]
  4. ESTROGEN [Concomitant]
  5. MULTI-VITAMIN [Concomitant]
  6. CALTRATE [Concomitant]
  7. VITAMIN B-12 [Concomitant]

REACTIONS (5)
  - ANXIETY [None]
  - BREAST PAIN [None]
  - HYPERSENSITIVITY [None]
  - MUSCLE SPASMS [None]
  - PAIN IN EXTREMITY [None]
